FAERS Safety Report 4872407-X (Version None)
Quarter: 2006Q1

REPORT INFORMATION
  Report Type: 
  Country: None (occurrence: None)
  Receive Date: 20060104
  Receipt Date: 20051222
  Transmission Date: 20060701
  Serious: Yes (Hospitalization)
  Sender: FDA-Public Use
  Company Number: GB-MERCK-0512GBR00130

PATIENT
  Age: 81 Year
  Sex: Female
  Weight: 80 kg

DRUGS (6)
  1. ZOCOR [Suspect]
     Route: 048
     Dates: start: 20050801, end: 20051201
  2. OMEPRAZOLE [Concomitant]
     Route: 048
     Dates: start: 19950101
  3. ELAVIL [Concomitant]
     Route: 048
     Dates: start: 19940101
  4. AMLODIPINE BESYLATE [Concomitant]
     Route: 048
     Dates: start: 19980101
  5. BENDROFLUMETHIAZIDE [Concomitant]
     Route: 048
     Dates: start: 19980101
  6. IBUPROFEN [Concomitant]
     Route: 061
     Dates: start: 19950101

REACTIONS (3)
  - FALL [None]
  - HYPOKALAEMIA [None]
  - SYNCOPE [None]
